FAERS Safety Report 4675481-9 (Version None)
Quarter: 2005Q2

REPORT INFORMATION
  Report Type: 
  Country: None (occurrence: None)
  Receive Date: 20050527
  Receipt Date: 20050318
  Transmission Date: 20051028
  Serious: No
  Sender: FDA-Public Use
  Company Number: US-BRISTOL-MYERS SQUIBB COMPANY-12903506

PATIENT
  Age: 34 Year
  Sex: Female
  Weight: 66 kg

DRUGS (5)
  1. ABILIFY [Suspect]
     Indication: BIPOLAR DISORDER
     Route: 048
  2. ABILIFY [Suspect]
     Route: 048
  3. TRAZODONE HCL [Concomitant]
  4. XANAX [Concomitant]
  5. LEXAPRO [Concomitant]

REACTIONS (4)
  - DIZZINESS [None]
  - TUNNEL VISION [None]
  - VISION BLURRED [None]
  - VOMITING [None]
